FAERS Safety Report 6052977-9 (Version None)
Quarter: 2009Q1

REPORT INFORMATION
  Report Type: 
  Country: None (occurrence: None)
  Receive Date: 20090127
  Receipt Date: 20081103
  Transmission Date: 20090719
  Serious: No
  Sender: FDA-Public Use
  Company Number: US-ABBOTT-08P-163-0485323-00

PATIENT
  Sex: Male
  Weight: 90.8 kg

DRUGS (2)
  1. LUPRON DEPOT [Suspect]
     Indication: PROSTATE CANCER
     Route: 030
     Dates: start: 20080701
  2. BICALUTAMIDE [Concomitant]
     Indication: HORMONE THERAPY
     Route: 048
     Dates: start: 20081103

REACTIONS (2)
  - DEPRESSION [None]
  - HOT FLUSH [None]
